FAERS Safety Report 9229620 (Version 2)
Quarter: 2013Q2

REPORT INFORMATION
  Report Type: Spontaneous
  Country: US (occurrence: US)
  Receive Date: 20130414
  Receipt Date: 20130520
  Transmission Date: 20140414
  Serious: No
  Sender: FDA-Public Use
  Company Number: US-009507513-1304USA006262

PATIENT
  Age: 92 Year
  Sex: Female
  Weight: 56.24 kg

DRUGS (4)
  1. CLARITIN [Suspect]
     Indication: RHINORRHOEA
     Dosage: 10 MG, QD
     Route: 048
     Dates: start: 201303, end: 201303
  2. CLARITIN [Suspect]
     Indication: THROAT IRRITATION
  3. CLARITIN [Suspect]
     Indication: COUGH
  4. TEMAZEPAM [Concomitant]
     Indication: INSOMNIA
     Dosage: UNK, UNKNOWN

REACTIONS (1)
  - Drug ineffective [Unknown]
